FAERS Safety Report 15128764 (Version 1)
Quarter: 2018Q3

REPORT INFORMATION
  Report Type: Spontaneous
  Country: US (occurrence: US)
  Receive Date: 20180711
  Receipt Date: 20180711
  Transmission Date: 20181010
  Serious: No
  Sender: FDA-Public Use
  Company Number: US-ASTRAZENECA-2018SE77291

PATIENT
  Sex: Female

DRUGS (2)
  1. WARFARIN [Concomitant]
     Active Substance: WARFARIN
  2. BYDUREON BCISE [Suspect]
     Active Substance: EXENATIDE
     Dosage: ONCE A WEEK
     Route: 065

REACTIONS (7)
  - Injection site scar [Unknown]
  - Device malfunction [Unknown]
  - Injection site extravasation [Unknown]
  - Wrong technique in device usage process [Unknown]
  - Fall [Unknown]
  - Head injury [Unknown]
  - Injection site haemorrhage [Unknown]
